FAERS Safety Report 7687972-7 (Version None)
Quarter: 2011Q3

REPORT INFORMATION
  Report Type: 
  Country: None (occurrence: None)
  Receive Date: 20110817
  Receipt Date: 20100802
  Transmission Date: 20111222
  Serious: Yes (Other)
  Sender: FDA-Public Use
  Company Number: US-PFIZER INC-2010097568

PATIENT
  Sex: Female

DRUGS (1)
  1. LYRICA [Suspect]
     Indication: TOXIC NEUROPATHY
     Dosage: UNK

REACTIONS (3)
  - SUICIDAL IDEATION [None]
  - DEPRESSION [None]
  - SWELLING FACE [None]
